FAERS Safety Report 7953259-8 (Version None)
Quarter: 2011Q4

REPORT INFORMATION
  Report Type: 
  Country: None (occurrence: None)
  Receive Date: 20111201
  Receipt Date: 20111125
  Transmission Date: 20120403
  Serious: Yes (Hospitalization)
  Sender: FDA-Public Use
  Company Number: DE-ROCHE-1017167

PATIENT
  Age: 51 Year
  Sex: Female

DRUGS (10)
  1. LEFLUNOMIDE [Suspect]
     Indication: RHEUMATOID ARTHRITIS
     Dates: start: 20100701, end: 20100801
  2. ADALIMUMAB [Suspect]
     Indication: RHEUMATOID ARTHRITIS
     Dates: start: 20100801, end: 20101001
  3. METFORMIN HCL [Concomitant]
     Dates: end: 20101101
  4. PRAVASTATIN [Concomitant]
     Dates: end: 20101101
  5. PANTOPRAZOLE SODIUM [Concomitant]
  6. METOPROLOL SUCCINATE [Concomitant]
  7. ATACAND [Concomitant]
     Dosage: REDUCED DOSE
  8. ACTEMRA [Suspect]
     Indication: RHEUMATOID ARTHRITIS
     Dates: start: 20101001, end: 20101001
  9. ABATACEPT [Suspect]
     Indication: RHEUMATOID ARTHRITIS
     Dates: start: 20101201, end: 20101201
  10. PREDNISOLONE [Concomitant]
     Dosage: DOSE REDUCED

REACTIONS (2)
  - HEPATIC STEATOSIS [None]
  - HEPATIC ENZYME INCREASED [None]
